FAERS Safety Report 4675107-4 (Version None)
Quarter: 2005Q2

REPORT INFORMATION
  Report Type: 
  Country: None (occurrence: None)
  Receive Date: 20050526
  Receipt Date: 20050303
  Transmission Date: 20051028
  Serious: Yes (Hospitalization, Other)
  Sender: FDA-Public Use
  Company Number: US-MERCK-0503USA00793

PATIENT
  Age: 78 Year
  Sex: Female
  Weight: 46 kg

DRUGS (12)
  1. ZANTAC [Concomitant]
     Route: 065
     Dates: end: 20010709
  2. TYLENOL (CAPLET) [Concomitant]
     Route: 065
  3. OXYCONTIN [Concomitant]
     Route: 065
  4. CELEXA [Concomitant]
     Route: 065
  5. LORAZEPAM [Concomitant]
     Route: 065
  6. VIOXX [Suspect]
     Indication: MONARTHRITIS
     Route: 048
     Dates: start: 19990101, end: 20040101
  7. VIOXX [Suspect]
     Route: 048
     Dates: start: 20010701
  8. PERCOCET [Concomitant]
     Route: 065
  9. TRAZODONE HYDROCHLORIDE [Concomitant]
     Route: 065
  10. DARVOCET-N 100 [Concomitant]
     Route: 065
  11. NORCO [Concomitant]
     Route: 065
  12. PEPCID [Concomitant]
     Route: 065
     Dates: start: 20010709

REACTIONS (25)
  - AMAUROSIS FUGAX [None]
  - ASTHMA [None]
  - BALANCE DISORDER [None]
  - BLINDNESS UNILATERAL [None]
  - BLOOD AMYLASE INCREASED [None]
  - CEREBROVASCULAR ACCIDENT [None]
  - CEREBROVASCULAR DISORDER [None]
  - CHRONIC OBSTRUCTIVE PULMONARY DISEASE [None]
  - DIZZINESS [None]
  - DUODENAL ULCER [None]
  - DUODENAL ULCER HAEMORRHAGE [None]
  - EMOTIONAL DISTRESS [None]
  - FATIGUE [None]
  - GAIT DISTURBANCE [None]
  - GASTROOESOPHAGEAL REFLUX DISEASE [None]
  - HYPERTENSION [None]
  - INSOMNIA [None]
  - METABOLIC ACIDOSIS [None]
  - OSTEITIS DEFORMANS [None]
  - OSTEOPOROSIS [None]
  - RETINAL ARTERY OCCLUSION [None]
  - RHINITIS ALLERGIC [None]
  - TRANSIENT ISCHAEMIC ATTACK [None]
  - VERTIGO POSITIONAL [None]
  - WRIST FRACTURE [None]
